FAERS Safety Report 25924894 (Version 1)
Quarter: 2025Q4

REPORT INFORMATION
  Report Type: Spontaneous
  Country: US (occurrence: None)
  Receive Date: 20251013
  Receipt Date: 20251013
  Transmission Date: 20260117
  Serious: No
  Sender: FDA-CTU
  Company Number: None

PATIENT
  Age: 83 Year
  Sex: Female

DRUGS (2)
  1. JAKAFI [Suspect]
     Active Substance: RUXOLITINIB
     Dosage: 20 MG TWICE A DAY ORAL?
     Route: 048
     Dates: start: 20250801
  2. JAKAFI [Concomitant]
     Active Substance: RUXOLITINIB
     Dates: start: 20250801

REACTIONS (2)
  - Back pain [None]
  - Insomnia [None]

NARRATIVE: CASE EVENT DATE: 20251013
